FAERS Safety Report 19467129 (Version 1)
Quarter: 2021Q2

REPORT INFORMATION
  Report Type: Spontaneous
  Country: US (occurrence: US)
  Receive Date: 20210628
  Receipt Date: 20210628
  Transmission Date: 20210717
  Serious: No
  Sender: FDA-Public Use
  Company Number: US-DRREDDYS-SPO/USA/21/0136623

PATIENT
  Age: 45 Year
  Sex: Female

DRUGS (2)
  1. LORAZEPAM INJECTION USP, 2 MG/ML AND 4 MG/ML [Suspect]
     Active Substance: LORAZEPAM
     Indication: ANXIETY
  2. IBUPROFEN. [Concomitant]
     Active Substance: IBUPROFEN
     Indication: HEADACHE
     Dosage: EVERY 4?6 HOURS

REACTIONS (3)
  - Mental status changes [Unknown]
  - Feeling abnormal [Unknown]
  - Lethargy [Unknown]
